FAERS Safety Report 20224162 (Version 2)
Quarter: 2022Q1

REPORT INFORMATION
  Report Type: Spontaneous
  Country: RU (occurrence: None)
  Receive Date: 20211223
  Receipt Date: 20220114
  Transmission Date: 20220423
  Serious: Yes (Life-Threatening, Hospitalization, Other)
  Sender: FDA-Public Use
  Company Number: RU-Eisai Medical Research-EC-2021-105632

PATIENT
  Age: 32 Year
  Sex: Male
  Weight: 80 kg

DRUGS (3)
  1. FYCOMPA [Suspect]
     Active Substance: PERAMPANEL
     Indication: Epilepsy
     Dosage: DOSE AND FREQUENCY UNKNOWN
     Route: 048
     Dates: start: 20210426, end: 2021
  2. FYCOMPA [Suspect]
     Active Substance: PERAMPANEL
     Dosage: UP-TITRATING THE DOSE (DOSE AND FREQUENCY UNKNOWN)
     Route: 048
     Dates: start: 2021, end: 2021
  3. FYCOMPA [Suspect]
     Active Substance: PERAMPANEL
     Route: 048
     Dates: start: 2021, end: 20211103

REACTIONS (5)
  - Psychotic disorder [Recovering/Resolving]
  - Suicidal ideation [Recovering/Resolving]
  - Irritability [Recovering/Resolving]
  - Suicide attempt [Recovered/Resolved]
  - Negative thoughts [Recovering/Resolving]

NARRATIVE: CASE EVENT DATE: 20210101
